APPROVED DRUG PRODUCT: LEVORPHANOL TARTRATE
Active Ingredient: LEVORPHANOL TARTRATE
Strength: 1MG
Dosage Form/Route: TABLET;ORAL
Application: A074278 | Product #002
Applicant: HIKMA PHARMACEUTICALS USA INC
Approved: Jun 18, 2018 | RLD: No | RS: No | Type: DISCN